FAERS Safety Report 14981761 (Version 1)
Quarter: 2018Q2

REPORT INFORMATION
  Report Type: Spontaneous
  Country: DK (occurrence: DK)
  Receive Date: 20180607
  Receipt Date: 20180607
  Transmission Date: 20180711
  Serious: Yes (Hospitalization)
  Sender: FDA-Public Use
  Company Number: DK-ACCORD-067821

PATIENT
  Age: 18 Year
  Sex: Male
  Weight: 104 kg

DRUGS (5)
  1. CISORDINOL-ACUTARD [Concomitant]
     Active Substance: ZUCLOPENTHIXOL ACETATE
     Indication: PRODUCT USED FOR UNKNOWN INDICATION
     Dosage: UNK
     Dates: start: 20150911, end: 20150913
  2. LITAREX [Concomitant]
     Active Substance: LITHIUM CITRATE
     Indication: PRODUCT USED FOR UNKNOWN INDICATION
     Dosage: UNK
  3. ABILIFY [Suspect]
     Active Substance: ARIPIPRAZOLE
     Indication: MANIA
     Dosage: 20 MG, QD
     Route: 048
     Dates: start: 20150910, end: 20150914
  4. CLONAZEPAM. [Suspect]
     Active Substance: CLONAZEPAM
     Indication: MANIA
     Dosage: 1 MG, BID
     Route: 048
     Dates: start: 20150911, end: 20150914
  5. RIVOTRIL [Suspect]
     Active Substance: CLONAZEPAM
     Indication: MANIA
     Dosage: 1 MG, BID??DOSIS: 1 MG. X 2, STYRKE: 0,5 MG
     Route: 048
     Dates: start: 20150911, end: 20150914

REACTIONS (7)
  - Salivary hypersecretion [Recovering/Resolving]
  - Restlessness [Not Recovered/Not Resolved]
  - Gait disturbance [Not Recovered/Not Resolved]
  - Blepharochalasis [Recovering/Resolving]
  - Sedation [Recovering/Resolving]
  - Dysphagia [Recovering/Resolving]
  - Extrapyramidal disorder [Recovering/Resolving]

NARRATIVE: CASE EVENT DATE: 20150914
